FAERS Safety Report 5508868-2 (Version None)
Quarter: 2007Q4

REPORT INFORMATION
  Report Type: 
  Country: None (occurrence: None)
  Receive Date: 20071105
  Receipt Date: 20071105
  Transmission Date: 20080405
  Serious: No
  Sender: FDA-Public Use
  Company Number: None

PATIENT
  Sex: Male

DRUGS (1)
  1. METOPROLOL SUCCINATE EXTENDED RELEASE [Suspect]
     Indication: HYPERTENSION
     Dosage: 100MG XL DAILY PO
     Route: 048
     Dates: start: 20070919, end: 20071011

REACTIONS (3)
  - DIZZINESS [None]
  - FALL [None]
  - PHARMACEUTICAL PRODUCT COMPLAINT [None]
